FAERS Safety Report 5702117-8 (Version None)
Quarter: 2008Q2

REPORT INFORMATION
  Report Type: 
  Country: None (occurrence: None)
  Receive Date: 20080411
  Receipt Date: 20071005
  Transmission Date: 20081010
  Serious: No
  Sender: FDA-Public Use
  Company Number: US-ABBOTT-07P-163-0419996-00

PATIENT
  Sex: Female

DRUGS (3)
  1. DEPAKOTE [Suspect]
     Indication: CONVULSION
     Route: 048
     Dates: start: 20060101
  2. PREGABALIN [Concomitant]
     Indication: DRUG USE FOR UNKNOWN INDICATION
  3. LEVOCARNITINE [Concomitant]
     Indication: DRUG USE FOR UNKNOWN INDICATION

REACTIONS (3)
  - ALOPECIA [None]
  - HAIR TEXTURE ABNORMAL [None]
  - TRICHORRHEXIS [None]
